FAERS Safety Report 7591794-5 (Version None)
Quarter: 2011Q3

REPORT INFORMATION
  Report Type: 
  Country: None (occurrence: None)
  Receive Date: 20110706
  Receipt Date: 20110622
  Transmission Date: 20111222
  Serious: Yes (Other)
  Sender: FDA-Public Use
  Company Number: CZ-BAYER-2011-053911

PATIENT
  Sex: Male

DRUGS (3)
  1. NEXAVAR [Suspect]
     Indication: HEPATIC NEOPLASM MALIGNANT
     Dosage: UNK
     Dates: start: 20090101, end: 20090801
  2. NEXAVAR [Suspect]
     Dosage: UNK
     Dates: start: 20090801, end: 20091101
  3. NEXAVAR [Suspect]
     Dosage: UNK
     Dates: start: 20091201

REACTIONS (6)
  - DUODENAL ULCER [None]
  - MELAENA [None]
  - ASCITES [None]
  - HEPATIC FAILURE [None]
  - DUODENAL ULCER HAEMORRHAGE [None]
  - HAEMATEMESIS [None]
